FAERS Safety Report 12488320 (Version 1)
Quarter: 2016Q2

REPORT INFORMATION
  Report Type: Spontaneous
  Country: US (occurrence: US)
  Receive Date: 20160622
  Receipt Date: 20160622
  Transmission Date: 20160815
  Serious: No
  Sender: FDA-Public Use
  Company Number: US-GLAXOSMITHKLINE-US2016GSK088566

PATIENT
  Sex: Female

DRUGS (1)
  1. BUPROPION HYDROCHLORIDE PROLONGED-RELEASE TABLET [Suspect]
     Active Substance: BUPROPION HYDROCHLORIDE
     Indication: DEPRESSION
     Dosage: 150 MG, UNK
     Dates: start: 201602

REACTIONS (3)
  - Depression [Unknown]
  - Condition aggravated [Unknown]
  - Drug ineffective [Unknown]
